FAERS Safety Report 19936646 (Version 1)
Quarter: 2021Q4

REPORT INFORMATION
  Report Type: Spontaneous
  Country: US (occurrence: US)
  Receive Date: 20211008
  Receipt Date: 20211008
  Transmission Date: 20220303
  Serious: No
  Sender: FDA-Public Use
  Company Number: US-SPROUT PHARMACEUTICALS, INC.-2021SP000021

PATIENT
  Age: 42 Year
  Sex: Female
  Weight: 54.48 kg

DRUGS (2)
  1. ADDYI [Suspect]
     Active Substance: FLIBANSERIN
     Indication: Libido decreased
     Route: 048
     Dates: start: 202101, end: 202101
  2. BUPROPION [Concomitant]
     Active Substance: BUPROPION
     Indication: Anxiety

REACTIONS (7)
  - Dizziness [Recovering/Resolving]
  - Night sweats [Recovering/Resolving]
  - Headache [Recovering/Resolving]
  - Feeling cold [Recovering/Resolving]
  - Nausea [Recovering/Resolving]
  - Fatigue [Recovering/Resolving]
  - Product use in unapproved indication [Recovered/Resolved]

NARRATIVE: CASE EVENT DATE: 20210101
